FAERS Safety Report 23958902 (Version 2)
Quarter: 2024Q2

REPORT INFORMATION
  Report Type: Report from Study
  Country: US (occurrence: US)
  Receive Date: 20240611
  Receipt Date: 20240612
  Transmission Date: 20240716
  Serious: Yes (Death)
  Sender: FDA-Public Use
  Company Number: US-ABBVIE-5795100

PATIENT
  Age: 77 Year
  Sex: Male
  Weight: 98 kg

DRUGS (6)
  1. VENCLEXTA [Suspect]
     Active Substance: VENETOCLAX
     Indication: Chronic lymphocytic leukaemia
     Dosage: FORM STRENGTH WAS 50 MILLIGRAM
     Route: 048
     Dates: start: 20190721
  2. VENCLEXTA [Suspect]
     Active Substance: VENETOCLAX
     Indication: Chronic lymphocytic leukaemia
     Dosage: DURATION TEXT: TAKE (1) 50MG (2) 10MG (FOR TOTAL 70MG)
     Route: 048
  3. VENCLEXTA [Suspect]
     Active Substance: VENETOCLAX
     Indication: Chronic lymphocytic leukaemia
     Dosage: DURATION TEXT: TAKE (1) 50MG (2) 10MG (FOR TOTAL 70MG)
     Route: 048
  4. VENCLEXTA [Suspect]
     Active Substance: VENETOCLAX
     Indication: Chronic lymphocytic leukaemia
     Dosage: FORM STRENGTH WAS 50 MILLIGRAM?DOSE REDUCED
     Route: 048
  5. VENCLEXTA [Suspect]
     Active Substance: VENETOCLAX
     Indication: Chronic lymphocytic leukaemia
     Dosage: DURATION TEXT: FOR 14 DAYS
     Route: 048
  6. AZACITIDINE [Suspect]
     Active Substance: AZACITIDINE
     Indication: Myelodysplastic syndrome
     Dosage: DURATION TEXT: DAYS 1-5 OR DAYS 1-7
     Route: 042
     Dates: start: 20230102

REACTIONS (6)
  - Sepsis [Fatal]
  - Disease progression [Fatal]
  - Neutropenia [Fatal]
  - Myeloproliferative neoplasm [Fatal]
  - Drug ineffective [Unknown]
  - Myelodysplastic syndrome [Fatal]

NARRATIVE: CASE EVENT DATE: 20221219
